FAERS Safety Report 6027125-1 (Version None)
Quarter: 2009Q1

REPORT INFORMATION
  Report Type: 
  Country: None (occurrence: None)
  Receive Date: 20090102
  Receipt Date: 20090102
  Transmission Date: 20090719
  Serious: Yes (Other)
  Sender: FDA-Public Use
  Company Number: None

PATIENT
  Age: 69 Year
  Sex: Female
  Weight: 102.0593 kg

DRUGS (2)
  1. COMPAZINE [Suspect]
     Indication: CHEST PAIN
     Dosage: IV
     Route: 042
     Dates: start: 20081224, end: 20081228
  2. COMPAZINE [Suspect]
     Indication: NAUSEA
     Dosage: IV
     Route: 042
     Dates: start: 20081224, end: 20081228

REACTIONS (7)
  - AGITATION [None]
  - BLOOD PRESSURE DECREASED [None]
  - CRYING [None]
  - DRUG HYPERSENSITIVITY [None]
  - DYSTONIA [None]
  - OXYGEN SATURATION DECREASED [None]
  - RESTLESS LEGS SYNDROME [None]
